FAERS Safety Report 20351475 (Version 1)
Quarter: 2022Q1

REPORT INFORMATION
  Report Type: Spontaneous
  Country: NO (occurrence: NO)
  Receive Date: 20220119
  Receipt Date: 20220119
  Transmission Date: 20220423
  Serious: Yes (Hospitalization, Other)
  Sender: FDA-Public Use
  Company Number: None

PATIENT
  Age: 32 Year
  Sex: Male
  Weight: 92 kg

DRUGS (1)
  1. CLOZAPINE [Suspect]
     Active Substance: CLOZAPINE
     Indication: Nervous system disorder
     Dosage: THE PATIENT REPORTED 300 MG A DAY BUT DIDN^T SPECIFY WHETHER THE DOSING REGIME IS DIVIDED OR ALTOGET
     Route: 048
     Dates: start: 2019

REACTIONS (2)
  - Post viral fatigue syndrome [Not Recovered/Not Resolved]
  - Hospitalisation [Unknown]
